FAERS Safety Report 8142575-5 (Version None)
Quarter: 2012Q1

REPORT INFORMATION
  Report Type: 
  Country: None (occurrence: None)
  Receive Date: 20120216
  Receipt Date: 20120209
  Transmission Date: 20120608
  Serious: Yes (Other)
  Sender: FDA-Public Use
  Company Number: US-TEVA-321936USA

PATIENT
  Sex: Male

DRUGS (1)
  1. CLARAVIS [Suspect]
     Indication: ACNE
     Dates: start: 20110901, end: 20111209

REACTIONS (6)
  - WEIGHT DECREASED [None]
  - HYPERVITAMINOSIS [None]
  - PROTEIN URINE [None]
  - HEPATIC STEATOSIS [None]
  - NEPHROPATHY TOXIC [None]
  - EXPOSURE VIA SEMEN [None]
